FAERS Safety Report 5809323-2 (Version None)
Quarter: 2008Q3

REPORT INFORMATION
  Report Type: 
  Country: None (occurrence: None)
  Receive Date: 20080714
  Receipt Date: 20080701
  Transmission Date: 20090109
  Serious: Yes (Hospitalization)
  Sender: FDA-Public Use
  Company Number: US-GENENTECH-264037

PATIENT
  Sex: Female

DRUGS (2)
  1. BEVACIZUMAB [Suspect]
     Indication: ENDOMETRIAL CANCER
     Dosage: 15 MG/KG, Q3W
     Route: 042
     Dates: start: 20071221
  2. ZOLOFT [Concomitant]
     Indication: ANXIETY

REACTIONS (2)
  - CHEST PAIN [None]
  - CHOLECYSTITIS [None]
